FAERS Safety Report 5267038-6 (Version None)
Quarter: 2007Q1

REPORT INFORMATION
  Report Type: 
  Country: None (occurrence: None)
  Receive Date: 20070316
  Receipt Date: 20070313
  Transmission Date: 20070707
  Serious: Yes (Death, Hospitalization)
  Sender: FDA-Public Use
  Company Number: FR-JNJFOC-20070300657

PATIENT
  Sex: Female
  Weight: 77 kg

DRUGS (23)
  1. GALANTAMINE HYDROBROMIDE [Suspect]
     Route: 048
  2. GALANTAMINE HYDROBROMIDE [Suspect]
     Route: 048
  3. GALANTAMINE HYDROBROMIDE [Suspect]
     Indication: DEMENTIA ALZHEIMER'S TYPE
     Route: 048
  4. PLACEBO [Suspect]
     Route: 048
  5. PLACEBO [Suspect]
     Route: 048
  6. PLACEBO [Suspect]
     Indication: DEMENTIA ALZHEIMER'S TYPE
     Route: 048
  7. ACTRAPID [Concomitant]
     Indication: DIABETES MELLITUS
     Dosage: 10 DOSES = 10 IU
     Route: 065
  8. DIFFU K [Concomitant]
     Route: 065
  9. DIFFU K [Concomitant]
     Indication: HYPOKALAEMIA
     Route: 065
  10. ACETAMINOPHEN AND TRAMADOL HCL [Concomitant]
     Route: 065
  11. ACETAMINOPHEN AND TRAMADOL HCL [Concomitant]
     Route: 065
  12. ACETAMINOPHEN AND TRAMADOL HCL [Concomitant]
     Indication: ARTHRALGIA
     Route: 065
  13. PREVISCAN [Concomitant]
     Indication: PHLEBITIS
     Route: 065
  14. CETORNAN [Concomitant]
     Indication: MALNUTRITION
     Route: 065
  15. NOVOMIX [Concomitant]
     Indication: DIABETES MELLITUS
     Route: 065
  16. FONZYLANE [Concomitant]
     Indication: ARTERITIS
  17. DAFALGAN [Concomitant]
     Indication: SKIN NECROSIS
     Route: 065
  18. LASIX [Concomitant]
     Indication: HYPERTENSION
     Route: 048
  19. LERCAN [Concomitant]
     Indication: HYPERTENSION
     Route: 048
  20. ALUMINUM HYDROXIDE AND MAGNESIUM TRISILICATE [Concomitant]
     Indication: GASTROINTESTINAL DISORDER
     Route: 065
  21. RISPERIDONE [Concomitant]
     Indication: ANXIETY
     Route: 048
  22. RISPERIDONE [Concomitant]
     Indication: AGITATION
     Route: 048
  23. RENITEC [Concomitant]
     Indication: HYPERTENSION
     Route: 048

REACTIONS (6)
  - DEATH [None]
  - DIABETES MELLITUS INADEQUATE CONTROL [None]
  - PAIN [None]
  - PYREXIA [None]
  - SKIN NECROSIS [None]
  - TRANSAMINASES INCREASED [None]
